FAERS Safety Report 24098065 (Version 1)
Quarter: 2024Q3

REPORT INFORMATION
  Report Type: Spontaneous
  Country: DK (occurrence: DK)
  Receive Date: 20240716
  Receipt Date: 20240716
  Transmission Date: 20241017
  Serious: Yes (Death)
  Sender: MYLAN
  Company Number: None

PATIENT
  Age: 52 Year
  Sex: Female
  Weight: 104 kg

DRUGS (8)
  1. OLANZAPINE [Suspect]
     Active Substance: OLANZAPINE
     Indication: Product used for unknown indication
     Dosage: DOSE: UNKNOWN.STRENGTH: UNKNOWN.
     Route: 048
  2. NITRAZEPAMUM [Concomitant]
     Dosage: UNKNOWN START DATE
     Route: 065
  3. DIAZEPAM [Concomitant]
     Active Substance: DIAZEPAM
     Dosage: UNKNOWN START DATE
     Route: 065
  4. FLUMAZENIL [Concomitant]
     Active Substance: FLUMAZENIL
     Dosage: UNKNOWN START DATE
     Route: 065
  5. Naloxonum [Concomitant]
     Dosage: UNKNOWN START DATE
     Route: 065
  6. OXAZEPAMUM [Concomitant]
     Dosage: UNKNOWN START DATE
     Route: 065
  7. PALIPERIDONE [Concomitant]
     Active Substance: PALIPERIDONE
     Dosage: UNKNOWN START DATE
     Route: 065
  8. LEVOMEPROMAZINE [Concomitant]
     Active Substance: LEVOMEPROMAZINE
     Dosage: UNKNOWN START DATE
     Route: 065

REACTIONS (1)
  - Toxicity to various agents [Fatal]

NARRATIVE: CASE EVENT DATE: 20240328
